FAERS Safety Report 16049075 (Version 4)
Quarter: 2019Q2

REPORT INFORMATION
  Report Type: Spontaneous
  Country: US (occurrence: US)
  Receive Date: 20190307
  Receipt Date: 20190524
  Transmission Date: 20190711
  Serious: Yes (Other)
  Sender: FDA-Public Use
  Company Number: US-ASTRAZENECA-2018SE99738

PATIENT
  Sex: Male
  Weight: 95.7 kg

DRUGS (45)
  1. PROTONIX [Suspect]
     Active Substance: PANTOPRAZOLE SODIUM
     Dosage: GENERIC
     Route: 065
  2. LIDOCAINE. [Concomitant]
     Active Substance: LIDOCAINE
  3. METOPROLOL SUCCINATE. [Concomitant]
     Active Substance: METOPROLOL SUCCINATE
  4. SIMVASTATIN. [Concomitant]
     Active Substance: SIMVASTATIN
  5. PRILOSEC [Suspect]
     Active Substance: OMEPRAZOLE MAGNESIUM
     Route: 048
  6. PRILOSEC [Suspect]
     Active Substance: OMEPRAZOLE MAGNESIUM
     Dosage: GENERIC
     Route: 065
     Dates: start: 20131017
  7. PRILOSEC [Suspect]
     Active Substance: OMEPRAZOLE MAGNESIUM
     Route: 048
     Dates: start: 20131115
  8. PREVACID [Suspect]
     Active Substance: LANSOPRAZOLE
     Dosage: GENERIC
     Route: 065
  9. CYCLOBENZAPRINE. [Concomitant]
     Active Substance: CYCLOBENZAPRINE
  10. RENVELA [Concomitant]
     Active Substance: SEVELAMER CARBONATE
  11. CRESTOR [Concomitant]
     Active Substance: ROSUVASTATIN CALCIUM
  12. PLAVIX [Concomitant]
     Active Substance: CLOPIDOGREL BISULFATE
  13. COMBIVENT [Concomitant]
     Active Substance: ALBUTEROL SULFATE\IPRATROPIUM BROMIDE
  14. RANOLAZINE. [Concomitant]
     Active Substance: RANOLAZINE
  15. CALOPIDOGREL BISULPHATE [Concomitant]
  16. MECLIZINE [Concomitant]
     Active Substance: MECLIZINE HYDROCHLORIDE
  17. ALPRAZOLAM. [Concomitant]
     Active Substance: ALPRAZOLAM
  18. CLOBETASOL [Concomitant]
     Active Substance: CLOBETASOL
  19. CYANOCOBALAMIN. [Concomitant]
     Active Substance: CYANOCOBALAMIN
  20. NEXIUM 24HR [Suspect]
     Active Substance: ESOMEPRAZOLE MAGNESIUM
     Route: 048
  21. PRILOSEC [Suspect]
     Active Substance: OMEPRAZOLE MAGNESIUM
     Route: 048
     Dates: start: 20120101, end: 20180618
  22. PRILOSEC [Suspect]
     Active Substance: OMEPRAZOLE MAGNESIUM
     Dosage: GENERIC
     Route: 065
  23. PRILOSEC OTC [Suspect]
     Active Substance: OMEPRAZOLE MAGNESIUM
     Route: 048
  24. SILVADENE [Concomitant]
     Active Substance: SILVER SULFADIAZINE
  25. TOPROL XL [Concomitant]
     Active Substance: METOPROLOL SUCCINATE
  26. RANEXA [Concomitant]
     Active Substance: RANOLAZINE
  27. XIBROM [Concomitant]
     Active Substance: BROMFENAC SODIUM
  28. NEXIUM [Suspect]
     Active Substance: ESOMEPRAZOLE MAGNESIUM
     Route: 048
  29. PRILOSEC [Suspect]
     Active Substance: OMEPRAZOLE MAGNESIUM
     Route: 048
  30. PREVACID [Suspect]
     Active Substance: LANSOPRAZOLE
     Route: 065
  31. ENOXAPARIN [Concomitant]
     Active Substance: ENOXAPARIN
  32. MUPIROCIN. [Concomitant]
     Active Substance: MUPIROCIN
  33. HYDROCODONE [Concomitant]
     Active Substance: HYDROCODONE
  34. PRILOSEC [Suspect]
     Active Substance: OMEPRAZOLE MAGNESIUM
     Route: 048
  35. PROTONIX [Suspect]
     Active Substance: PANTOPRAZOLE SODIUM
     Route: 065
  36. ROPINIROLE. [Concomitant]
     Active Substance: ROPINIROLE
  37. ATORVASTATIN [Concomitant]
     Active Substance: ATORVASTATIN
  38. FLUOXETINE [Concomitant]
     Active Substance: FLUOXETINE HYDROCHLORIDE
  39. AMOX [Concomitant]
     Active Substance: UNSPECIFIED INGREDIENT
  40. PREVACID 24 HR [Suspect]
     Active Substance: LANSOPRAZOLE
     Route: 065
  41. SENSIPAR [Concomitant]
     Active Substance: CINACALCET HYDROCHLORIDE
  42. TRAZODONE [Concomitant]
     Active Substance: TRAZODONE HYDROCHLORIDE
  43. HYDROXYZINE [Concomitant]
     Active Substance: HYDROXYZINE HYDROCHLORIDE
  44. GENTAMICIN. [Concomitant]
     Active Substance: GENTAMICIN
  45. CLOPIDOGREL [Concomitant]
     Active Substance: CLOPIDOGREL BISULFATE

REACTIONS (4)
  - Acute kidney injury [Unknown]
  - Chronic kidney disease [Unknown]
  - Renal injury [Unknown]
  - End stage renal disease [Unknown]
